FAERS Safety Report 21927690 (Version 1)
Quarter: 2023Q1

REPORT INFORMATION
  Report Type: Spontaneous
  Country: US (occurrence: US)
  Receive Date: 20230130
  Receipt Date: 20230130
  Transmission Date: 20230418
  Serious: Yes (Other)
  Sender: FDA-Public Use
  Company Number: US-PFIZER INC-PV202300017168

PATIENT
  Age: 75 Year
  Sex: Female

DRUGS (3)
  1. TIKOSYN [Suspect]
     Active Substance: DOFETILIDE
     Indication: Atrial fibrillation
     Dosage: 250 UG, 2X/DAY
     Route: 048
     Dates: start: 20220119
  2. TIKOSYN [Suspect]
     Active Substance: DOFETILIDE
     Indication: Cardiac ablation
  3. MULTAQ [Suspect]
     Active Substance: DRONEDARONE
     Dosage: UNK

REACTIONS (2)
  - Atrial fibrillation [Unknown]
  - Therapeutic product effect incomplete [Unknown]
